FAERS Safety Report 13678271 (Version 1)
Quarter: 2017Q2

REPORT INFORMATION
  Report Type: Spontaneous
  Country: US (occurrence: US)
  Receive Date: 20170621
  Receipt Date: 20170621
  Transmission Date: 20170830
  Serious: Yes (Hospitalization, Disabling)
  Sender: FDA-Public Use
  Company Number: None

PATIENT
  Age: 40 Year
  Sex: Male
  Weight: 70.2 kg

DRUGS (10)
  1. NEURONTIN [Concomitant]
     Active Substance: GABAPENTIN
  2. ACETAMINOPHEN. [Concomitant]
     Active Substance: ACETAMINOPHEN
  3. PRILOSEC [Concomitant]
     Active Substance: OMEPRAZOLE MAGNESIUM
  4. HYOSCYAMINE 0.12 MG TAB SUB LING [Suspect]
     Active Substance: HYOSCYAMINE
     Indication: DIVERTICULITIS
     Dosage: ?          QUANTITY:90 TABLET(S);?
     Route: 060
     Dates: start: 20160311, end: 20160921
  5. LUNESTA [Concomitant]
     Active Substance: ESZOPICLONE
  6. DICYCLOMINE (BENTYL) [Concomitant]
  7. LURASIDONE (LATUDA) [Concomitant]
  8. LAMOTRIGINE (LAMICTAL) [Concomitant]
  9. BEANO [Concomitant]
     Active Substance: ASPERGILLUS NIGER .ALPHA.-GALACTOSIDASE
  10. HYOSCYAMINE 0.12 MG TAB SUB LING [Suspect]
     Active Substance: HYOSCYAMINE
     Indication: ABDOMINAL PAIN UPPER
     Dosage: ?          QUANTITY:90 TABLET(S);?
     Route: 060
     Dates: start: 20160311, end: 20160921

REACTIONS (6)
  - Dyspnoea [None]
  - Head titubation [None]
  - Tremor [None]
  - Irritability [None]
  - Memory impairment [None]
  - Fatigue [None]

NARRATIVE: CASE EVENT DATE: 20160501
